FAERS Safety Report 4513497-3 (Version None)
Quarter: 2004Q4

REPORT INFORMATION
  Report Type: 
  Country: None (occurrence: None)
  Receive Date: 20041130
  Receipt Date: 20041118
  Transmission Date: 20050328
  Serious: Yes (Death, Hospitalization)
  Sender: FDA-Public Use
  Company Number: FR-JNJFOC-20040908781

PATIENT
  Sex: Male

DRUGS (12)
  1. REMINYL [Suspect]
     Route: 049
  2. CORDARONE [Concomitant]
     Route: 065
  3. ATACAND [Concomitant]
     Route: 065
  4. VASTAREL [Concomitant]
     Route: 065
  5. ZOCOR [Concomitant]
     Route: 065
  6. PLAVIX [Concomitant]
     Route: 065
  7. PROZAC [Concomitant]
     Route: 065
  8. XATRAL [Concomitant]
     Route: 065
  9. RIFATER [Concomitant]
     Route: 065
  10. RIFATER [Concomitant]
     Route: 065
  11. RIFATER [Concomitant]
     Route: 065
  12. FORLAX [Concomitant]
     Route: 065

REACTIONS (15)
  - ACUTE RESPIRATORY FAILURE [None]
  - AORTIC VALVE INCOMPETENCE [None]
  - ATRIAL FIBRILLATION [None]
  - ATRIOVENTRICULAR BLOCK COMPLETE [None]
  - BLOOD PRESSURE DECREASED [None]
  - BRADYCARDIA [None]
  - CEREBROVASCULAR ACCIDENT [None]
  - DEHYDRATION [None]
  - GENERAL PHYSICAL HEALTH DETERIORATION [None]
  - HYPOTHYROIDISM [None]
  - ISCHAEMIC STROKE [None]
  - MALAISE [None]
  - MITRAL VALVE INCOMPETENCE [None]
  - MYOCARDIAL INFARCTION [None]
  - PNEUMONIA ASPIRATION [None]
